FAERS Safety Report 4943431-3 (Version None)
Quarter: 2006Q1

REPORT INFORMATION
  Report Type: 
  Country: None (occurrence: None)
  Receive Date: 20060309
  Receipt Date: 20060227
  Transmission Date: 20060701
  Serious: Yes (Hospitalization, Other)
  Sender: FDA-Public Use
  Company Number: 2005097621

PATIENT
  Age: 66 Year
  Sex: Female
  Weight: 68.0396 kg

DRUGS (3)
  1. XALATAN [Suspect]
     Indication: GLAUCOMA
     Dosage: 3 MCG (1.5 MCG, 2 IN 1 D), OPHTHALMIC
     Route: 047
  2. PILOCARPINE HYDROCHLORIDE [Suspect]
     Indication: ILL-DEFINED DISORDER
     Dates: end: 20050301
  3. COSOPT [Suspect]
     Indication: ILL-DEFINED DISORDER
     Dosage: 2 DROP (1 DROP, 2 IN 1 D),

REACTIONS (5)
  - ACCIDENT [None]
  - AMNESIA [None]
  - CATARACT [None]
  - EYE EXCISION [None]
  - HAEMORRHAGE [None]
